FAERS Safety Report 7828479-3 (Version None)
Quarter: 2011Q4

REPORT INFORMATION
  Report Type: 
  Country: None (occurrence: None)
  Receive Date: 20111020
  Receipt Date: 20111011
  Transmission Date: 20120403
  Serious: Yes (Hospitalization)
  Sender: FDA-Public Use
  Company Number: US-MERCK-1110USA01668

PATIENT
  Age: 50 Year
  Sex: Male
  Weight: 82 kg

DRUGS (4)
  1. ZOCOR [Suspect]
     Indication: HYPERCHOLESTEROLAEMIA
     Route: 048
  2. ASPIRIN [Concomitant]
     Indication: CARDIOVASCULAR EVENT PROPHYLAXIS
     Route: 048
  3. AMBIEN [Concomitant]
     Indication: INSOMNIA
     Route: 048
  4. ASPIRIN [Concomitant]
     Indication: CEREBROVASCULAR ACCIDENT PROPHYLAXIS
     Route: 048

REACTIONS (9)
  - SINUS DISORDER [None]
  - AMNESIA [None]
  - PSYCHOTIC DISORDER [None]
  - HALLUCINATION [None]
  - FATIGUE [None]
  - TRANSIENT GLOBAL AMNESIA [None]
  - CEREBRAL ATROPHY [None]
  - CONFUSIONAL STATE [None]
  - POOR QUALITY SLEEP [None]
